FAERS Safety Report 6535374-9 (Version None)
Quarter: 2010Q1

REPORT INFORMATION
  Report Type: 
  Country: None (occurrence: None)
  Receive Date: 20100113
  Receipt Date: 20100107
  Transmission Date: 20100710
  Serious: Yes (Other)
  Sender: FDA-Public Use
  Company Number: US-JNJFOC-20100103268

PATIENT
  Age: 57 Year
  Sex: Male
  Weight: 131.54 kg

DRUGS (4)
  1. LEVAQUIN [Suspect]
     Indication: PROSTATIC OPERATION
     Route: 048
     Dates: start: 20070727, end: 20070801
  2. HEART MEDICATIONS (NOS) [Concomitant]
     Route: 065
  3. BLOOD PRESSURE MEDICATION NOS [Concomitant]
     Route: 065
  4. GOUT MEDICATIONS [Concomitant]
     Route: 065

REACTIONS (3)
  - JOINT CREPITATION [None]
  - JOINT INJURY [None]
  - PAIN [None]
